FAERS Safety Report 17043508 (Version 3)
Quarter: 2019Q4

REPORT INFORMATION
  Report Type: Spontaneous
  Country: US (occurrence: US)
  Receive Date: 20191118
  Receipt Date: 20191212
  Transmission Date: 20200122
  Serious: Yes (Other)
  Sender: FDA-Public Use
  Company Number: US-PFIZER INC-2019493909

PATIENT
  Age: 72 Year
  Sex: Male

DRUGS (5)
  1. KEYTRUDA [Concomitant]
     Active Substance: PEMBROLIZUMAB
     Indication: RENAL CANCER
     Dosage: UNK
     Dates: start: 20191014, end: 20191115
  2. INLYTA [Suspect]
     Active Substance: AXITINIB
     Dosage: 5 MG, 2X/DAY
     Route: 048
     Dates: start: 20191026, end: 20191111
  3. KEYTRUDA [Concomitant]
     Active Substance: PEMBROLIZUMAB
     Dosage: 200 MG, UNK
     Route: 042
     Dates: start: 20191115
  4. INLYTA [Suspect]
     Active Substance: AXITINIB
     Indication: RENAL CANCER
     Dosage: 6 MG, UNK
  5. INLYTA [Suspect]
     Active Substance: AXITINIB
     Dosage: 1 MG, UNK

REACTIONS (8)
  - Weight decreased [Not Recovered/Not Resolved]
  - Asthenia [Not Recovered/Not Resolved]
  - Fatigue [Not Recovered/Not Resolved]
  - Decreased appetite [Not Recovered/Not Resolved]
  - Blood urea abnormal [Unknown]
  - Creatinine renal clearance decreased [Unknown]
  - Acute kidney injury [Not Recovered/Not Resolved]
  - Blood creatine abnormal [Unknown]

NARRATIVE: CASE EVENT DATE: 20191111
